FAERS Safety Report 4935165-6 (Version None)
Quarter: 2006Q1

REPORT INFORMATION
  Report Type: 
  Country: None (occurrence: None)
  Receive Date: 20060303
  Receipt Date: 20060303
  Transmission Date: 20060701
  Serious: Yes (Hospitalization)
  Sender: FDA-Public Use
  Company Number: None

PATIENT
  Age: 69 Year
  Sex: Male
  Weight: 85 kg

DRUGS (6)
  1. OXALIPLATIN 130 MG/M2 [Suspect]
     Indication: ADENOCARCINOMA
     Dosage: 256 MG IV Q WKS
     Route: 042
     Dates: start: 20060206
  2. OXALIPLATIN 130 MG/M2 [Suspect]
     Indication: SMALL INTESTINE CARCINOMA METASTATIC
     Dosage: 256 MG IV Q WKS
     Route: 042
     Dates: start: 20060206
  3. CAPECITABINE 1500 MG/M2 [Suspect]
  4. HYDROCODONE BITARTRATE + ACETAMINOPHEN [Concomitant]
  5. COMPAZINE [Concomitant]
  6. ZOFRAN [Concomitant]

REACTIONS (4)
  - ABDOMINAL DISTENSION [None]
  - NAUSEA [None]
  - SMALL INTESTINAL OBSTRUCTION [None]
  - VOMITING [None]
